FAERS Safety Report 6659510-9 (Version None)
Quarter: 2010Q1

REPORT INFORMATION
  Report Type: 
  Country: None (occurrence: None)
  Receive Date: 20100330
  Receipt Date: 20100319
  Transmission Date: 20100710
  Serious: Yes (Hospitalization)
  Sender: FDA-Public Use
  Company Number: US-ELI_LILLY_AND_COMPANY-US201003005673

PATIENT
  Sex: Male

DRUGS (1)
  1. ALIMTA [Suspect]
     Dosage: 1 D/F, UNK

REACTIONS (1)
  - AORTIC ANEURYSM [None]
